FAERS Safety Report 8488600-3 (Version None)
Quarter: 2012Q3

REPORT INFORMATION
  Report Type: 
  Country: None (occurrence: None)
  Receive Date: 20120705
  Receipt Date: 20120628
  Transmission Date: 20120928
  Serious: Yes (Other)
  Sender: FDA-Public Use
  Company Number: PHHY2012AU053632

PATIENT
  Sex: Male

DRUGS (1)
  1. CLOZARIL [Suspect]
     Dosage: 300 MG
     Route: 048
     Dates: start: 20100618

REACTIONS (3)
  - TROPONIN INCREASED [None]
  - HEART VALVE INCOMPETENCE [None]
  - QRS AXIS ABNORMAL [None]
